FAERS Safety Report 5044253-8 (Version None)
Quarter: 2006Q2

REPORT INFORMATION
  Report Type: 
  Country: None (occurrence: None)
  Receive Date: 20060629
  Receipt Date: 20060614
  Transmission Date: 20061013
  Serious: Yes (Hospitalization, Other)
  Sender: FDA-Public Use
  Company Number: DE-2006-008345

PATIENT
  Age: 19 Year
  Sex: Female

DRUGS (3)
  1. BETASERON [Suspect]
     Indication: MULTIPLE SCLEROSIS
     Dosage: 9.6 MIU, EVERY 2D, SUBCUTANEOUS
     Route: 058
     Dates: start: 20060101, end: 20060423
  2. PARACETAMOL [Concomitant]
  3. TOPAMAX [Concomitant]

REACTIONS (8)
  - ABASIA [None]
  - ABNORMAL BEHAVIOUR [None]
  - ANXIETY [None]
  - DELUSION [None]
  - HALLUCINATION [None]
  - ILLUSION [None]
  - INSOMNIA [None]
  - MUSCLE SPASMS [None]
